FAERS Safety Report 4791752-X (Version None)
Quarter: 2005Q4

REPORT INFORMATION
  Report Type: 
  Country: None (occurrence: None)
  Receive Date: 20051005
  Receipt Date: 20050923
  Transmission Date: 20060501
  Serious: Yes (Life-Threatening, Hospitalization, Other)
  Sender: FDA-Public Use
  Company Number: 200513009GDS

PATIENT
  Age: 31 Year
  Sex: Female

DRUGS (1)
  1. APROTININ [Suspect]
     Indication: PROPHYLAXIS
     Dosage: SEE IMAGE
     Route: 042

REACTIONS (20)
  - AIR EMBOLISM [None]
  - ANURIA [None]
  - BRADYCARDIA [None]
  - COMPLICATIONS OF TRANSPLANT SURGERY [None]
  - COMPLICATIONS OF TRANSPLANTED LIVER [None]
  - DILATATION VENTRICULAR [None]
  - HEPATIC INFARCTION [None]
  - HYPERCOAGULATION [None]
  - HYPOTENSION [None]
  - METABOLIC ACIDOSIS [None]
  - METABOLIC DISORDER [None]
  - OLIGURIA [None]
  - POOR PERIPHERAL CIRCULATION [None]
  - POST PROCEDURAL COMPLICATION [None]
  - PULMONARY EMBOLISM [None]
  - PULMONARY HYPERTENSION [None]
  - RENAL FAILURE [None]
  - THROMBOSIS [None]
  - TRICUSPID VALVE INCOMPETENCE [None]
  - VASCULAR PROCEDURE COMPLICATION [None]
